FAERS Safety Report 12309354 (Version 1)
Quarter: 2016Q2

REPORT INFORMATION
  Report Type: Spontaneous
  Country: US (occurrence: None)
  Receive Date: 20160426
  Receipt Date: 20160426
  Transmission Date: 20160815
  Serious: Yes (Disabling)
  Sender: FDA-Public Use
  Company Number: None

PATIENT
  Age: 33 Year
  Sex: Female
  Weight: 92.99 kg

DRUGS (1)
  1. MEDROXYPROGESTERONE 150 PREF SYRINGE [Suspect]
     Active Substance: MEDROXYPROGESTERONE

REACTIONS (4)
  - Sciatic nerve injury [None]
  - Iatrogenic injury [None]
  - Alopecia [None]
  - Pain [None]

NARRATIVE: CASE EVENT DATE: 20160201
